FAERS Safety Report 23677883 (Version 1)
Quarter: 2024Q1

REPORT INFORMATION
  Report Type: Spontaneous
  Country: US (occurrence: None)
  Receive Date: 20240326
  Receipt Date: 20240326
  Transmission Date: 20240410
  Serious: Yes (Hospitalization)
  Sender: FDA-Public Use
  Company Number: None

PATIENT
  Sex: Female

DRUGS (3)
  1. TERIFLUNOMIDE [Suspect]
     Active Substance: TERIFLUNOMIDE
     Indication: Multiple sclerosis
     Dosage: FREQUENCY : DAILY;?
     Dates: start: 20230908
  2. COREG [Concomitant]
     Active Substance: CARVEDILOL
  3. METHADONE POW [Concomitant]

REACTIONS (3)
  - Hospitalisation [None]
  - Therapy interrupted [None]
  - Hypoaesthesia [None]
